FAERS Safety Report 12579572 (Version 1)
Quarter: 2016Q3

REPORT INFORMATION
  Report Type: Spontaneous
  Country: FR (occurrence: FR)
  Receive Date: 20160721
  Receipt Date: 20160721
  Transmission Date: 20161109
  Serious: Yes (Hospitalization)
  Sender: FDA-Public Use
  Company Number: FR-PFIZER INC-2016347020

PATIENT
  Age: 66 Year
  Sex: Male

DRUGS (13)
  1. FUROSEMIDE. [Interacting]
     Active Substance: FUROSEMIDE
     Dosage: 250 MG, DAILY
     Route: 065
  2. SITAGLIPTIN PHOSPHATE [Concomitant]
     Active Substance: SITAGLIPTIN PHOSPHATE
     Dosage: UNK
  3. FORMOTEROL [Concomitant]
     Active Substance: FORMOTEROL
     Dosage: UNK
  4. MOPRAL [Concomitant]
     Active Substance: OMEPRAZOLE SODIUM
     Dosage: UNK
  5. CRESTOR [Concomitant]
     Active Substance: ROSUVASTATIN CALCIUM
     Dosage: UNK
     Dates: end: 20160511
  6. BUDESONIDE. [Concomitant]
     Active Substance: BUDESONIDE
     Dosage: UNK
  7. KETOPROFEN. [Interacting]
     Active Substance: KETOPROFEN
     Indication: ARTHRALGIA
     Dosage: 100 MG, DAILY
     Route: 048
     Dates: start: 20160510, end: 20160511
  8. GLIBENCLAMIDE [Concomitant]
     Active Substance: GLYBURIDE
     Dosage: UNK
     Dates: end: 20160511
  9. DETENSIEL [Concomitant]
     Active Substance: BISOPROLOL FUMARATE
     Dosage: UNK
  10. TRIATEC [Suspect]
     Active Substance: RAMIPRIL
     Dosage: 1 DF, DAILY
     Route: 048
     Dates: end: 20160511
  11. DICLOFENAC [Interacting]
     Active Substance: DICLOFENAC
     Indication: ARTHRALGIA
     Dosage: UNK
     Route: 065
     Dates: start: 20160510, end: 20160511
  12. GLUCOPHAGE [Concomitant]
     Active Substance: METFORMIN HYDROCHLORIDE
     Dosage: UNK
     Dates: end: 20160511
  13. PREVISCAN [Concomitant]
     Active Substance: FLUINDIONE
     Dosage: UNK

REACTIONS (2)
  - Drug interaction [Recovered/Resolved]
  - Acute kidney injury [Recovered/Resolved]

NARRATIVE: CASE EVENT DATE: 20160511
